FAERS Safety Report 12340288 (Version 1)
Quarter: 2016Q2

REPORT INFORMATION
  Report Type: Spontaneous
  Country: US (occurrence: None)
  Receive Date: 20160505
  Receipt Date: 20160505
  Transmission Date: 20160815
  Serious: Yes (Disabling)
  Sender: FDA-Public Use
  Company Number: None

PATIENT
  Age: 72 Year
  Sex: Female
  Weight: 70.31 kg

DRUGS (6)
  1. RITUXAN [Suspect]
     Active Substance: RITUXIMAB
     Indication: CHRONIC LYMPHOCYTIC LEUKAEMIA
     Dosage: BI-MONTHLY INTO A VEIN
     Route: 042
     Dates: start: 20140604, end: 20160211
  2. MOTRIN [Concomitant]
     Active Substance: IBUPROFEN
  3. SYNTHROID [Concomitant]
     Active Substance: LEVOTHYROXINE SODIUM
  4. NORCO [Concomitant]
     Active Substance: ACETAMINOPHEN\HYDROCODONE BITARTRATE
  5. PREVACID [Concomitant]
     Active Substance: LANSOPRAZOLE
  6. ROBAXIN [Concomitant]
     Active Substance: METHOCARBAMOL

REACTIONS (15)
  - Death of relative [None]
  - Cough [None]
  - Dyspnoea [None]
  - Pruritus [None]
  - Arthralgia [None]
  - Disease complication [None]
  - Heart rate irregular [None]
  - Bronchiectasis [None]
  - Computerised tomogram thorax abnormal [None]
  - Pain in extremity [None]
  - Chills [None]
  - Hypertension [None]
  - Lung disorder [None]
  - Refusal of treatment by patient [None]
  - Myalgia [None]

NARRATIVE: CASE EVENT DATE: 20150901
